FAERS Safety Report 5680460-9 (Version None)
Quarter: 2008Q1

REPORT INFORMATION
  Report Type: 
  Country: None (occurrence: None)
  Receive Date: 20080326
  Receipt Date: 20080317
  Transmission Date: 20080703
  Serious: Yes (Other)
  Sender: FDA-Public Use
  Company Number: B0507353A

PATIENT
  Age: 49 Year
  Sex: Female
  Weight: 70 kg

DRUGS (6)
  1. MALARONE [Suspect]
     Indication: MALARIA PROPHYLAXIS
     Dates: start: 20071224
  2. LISINOPRIL [Concomitant]
     Route: 048
     Dates: start: 20000101, end: 20080111
  3. LISINOPRIL [Concomitant]
  4. FUROSEMIDE [Concomitant]
     Route: 048
     Dates: start: 20000101, end: 20080109
  5. FUROSEMIDE [Concomitant]
  6. CARVEDILOL [Concomitant]
     Route: 048
     Dates: start: 20000101

REACTIONS (1)
  - PANCYTOPENIA [None]
